FAERS Safety Report 14467981 (Version 2)
Quarter: 2018Q1

REPORT INFORMATION
  Report Type: Spontaneous
  Country: US (occurrence: US)
  Receive Date: 20180131
  Receipt Date: 20180206
  Transmission Date: 20180509
  Serious: Yes (Other)
  Sender: FDA-Public Use
  Company Number: US-PFIZER INC-2018038967

PATIENT
  Age: 70 Year
  Sex: Male

DRUGS (2)
  1. MYLOTARG [Suspect]
     Active Substance: GEMTUZUMAB OZOGAMICIN
     Dosage: 3 MG/M2, CYCLIC (ON DAY 1, AND DAY 4)
  2. MYLOTARG [Suspect]
     Active Substance: GEMTUZUMAB OZOGAMICIN
     Indication: ACUTE MYELOID LEUKAEMIA
     Dosage: 1 CYCLE

REACTIONS (5)
  - Epistaxis [Unknown]
  - White blood cell count decreased [Unknown]
  - Blood blister [Unknown]
  - Neutrophil count decreased [Unknown]
  - Platelet count decreased [Unknown]
